FAERS Safety Report 20536018 (Version 1)
Quarter: 2022Q1

REPORT INFORMATION
  Report Type: Spontaneous
  Country: US (occurrence: US)
  Receive Date: 20220302
  Receipt Date: 20220302
  Transmission Date: 20220423
  Serious: Yes (Other)
  Sender: FDA-Public Use
  Company Number: US-BRISTOL-MYERS SQUIBB COMPANY-BMS-2022-028621

PATIENT
  Age: 17 Year
  Sex: Female

DRUGS (2)
  1. NIVOLUMAB [Suspect]
     Active Substance: NIVOLUMAB
     Indication: Metastatic ocular melanoma
     Dosage: UNKNOWN EVERY 3WEEKS
     Route: 065
  2. IPILIMUMAB [Suspect]
     Active Substance: IPILIMUMAB
     Indication: Metastatic ocular melanoma
     Dosage: UNKNOWN EVERY 3WEEKS
     Route: 065

REACTIONS (1)
  - Immune-mediated thyroiditis [Recovering/Resolving]
